FAERS Safety Report 17348628 (Version 3)
Quarter: 2020Q2

REPORT INFORMATION
  Report Type: Report from Study
  Country: JP (occurrence: JP)
  Receive Date: 20200130
  Receipt Date: 20200401
  Transmission Date: 20200713
  Serious: Yes (Other)
  Sender: FDA-Public Use
  Company Number: JP-BRISTOL-MYERS SQUIBB COMPANY-BMS-2020-004794

PATIENT
  Age: 64 Year
  Sex: Female
  Weight: 36.4 kg

DRUGS (2)
  1. NIVOLUMAB [Suspect]
     Active Substance: NIVOLUMAB
     Indication: METASTATIC RENAL CELL CARCINOMA
     Dosage: 240 MILLIGRAM
     Route: 041
     Dates: start: 20190911, end: 20191127
  2. IPILIMUMAB [Suspect]
     Active Substance: IPILIMUMAB
     Indication: METASTATIC RENAL CELL CARCINOMA
     Dosage: 1 MILLIGRAM/KILOGRAM
     Route: 041
     Dates: start: 20190911, end: 20191127

REACTIONS (4)
  - Anaemia [Recovered/Resolved]
  - Amylase increased [Recovered/Resolved]
  - Rash [Recovered/Resolved]
  - Lipase increased [Recovering/Resolving]

NARRATIVE: CASE EVENT DATE: 20191002
